FAERS Safety Report 12253961 (Version 1)
Quarter: 2016Q2

REPORT INFORMATION
  Report Type: Spontaneous
  Country: US (occurrence: US)
  Receive Date: 20160411
  Receipt Date: 20160411
  Transmission Date: 20160815
  Serious: No
  Sender: FDA-Public Use
  Company Number: US-WARNER CHILCOTT, LLC-1050435

PATIENT
  Age: 56 Year
  Sex: Female

DRUGS (2)
  1. SUDAFED [Concomitant]
     Active Substance: PSEUDOEPHEDRINE HYDROCHLORIDE
  2. FEMRING [Suspect]
     Active Substance: ESTRADIOL ACETATE
     Indication: HYSTERECTOMY
     Route: 067

REACTIONS (1)
  - Drug ineffective [Not Recovered/Not Resolved]
